FAERS Safety Report 7714102-5 (Version None)
Quarter: 2011Q3

REPORT INFORMATION
  Report Type: 
  Country: None (occurrence: None)
  Receive Date: 20110828
  Receipt Date: 20110804
  Transmission Date: 20111222
  Serious: No
  Sender: FDA-Public Use
  Company Number: US-ROXANE LABORATORIES, INC.-2011-RO-00907RO

PATIENT
  Sex: Male

DRUGS (5)
  1. TAXOTERE [Concomitant]
     Indication: SPINDLE CELL SARCOMA
  2. FUROSEMIDE [Suspect]
     Indication: CARDIAC FAILURE CONGESTIVE
     Dosage: 40 MG
     Route: 048
  3. SIMAVASTATIN [Concomitant]
  4. LOSARTAN [Concomitant]
  5. GEMZAR [Concomitant]

REACTIONS (1)
  - DRUG INEFFECTIVE [None]
